FAERS Safety Report 9416658 (Version 2)
Quarter: 2013Q4

REPORT INFORMATION
  Report Type: Report from Study
  Country: US (occurrence: US)
  Receive Date: 20130724
  Receipt Date: 20131227
  Transmission Date: 20140711
  Serious: Yes (Life-Threatening, Hospitalization, Other)
  Sender: FDA-Public Use
  Company Number: US-ASTELLAS-2013EU006355

PATIENT
  Age: 66 Year
  Sex: Male
  Weight: 84 kg

DRUGS (63)
  1. BLINDED FIDAXOMICIN [Suspect]
     Indication: PROPHYLAXIS
     Dosage: 1 TABLET, QD
     Route: 048
     Dates: start: 20130614, end: 20130619
  2. TAMSULOSIN [Suspect]
     Indication: NEPHROLITHIASIS
     Dosage: 0.4-MG-QD
     Route: 048
     Dates: start: 20120905
  3. MICAFUNGIN [Suspect]
     Indication: ANTIFUNGAL PROPHYLAXIS
     Dosage: 50-MG-EVERY 24 HOURS
     Route: 042
     Dates: start: 20130614
  4. TACROLIMUS SYSTEMIC [Suspect]
     Indication: PROPHYLAXIS AGAINST GRAFT VERSUS HOST DISEASE
     Dosage: 0.4-1.2-MG-Q24H
     Route: 042
     Dates: start: 20130619, end: 20130701
  5. TACROLIMUS SYSTEMIC [Suspect]
     Dosage: 1.5-3-MG-Q12H
     Route: 048
     Dates: start: 20130702
  6. GABAPENTIN [Concomitant]
     Indication: NEURALGIA
     Dosage: 100-400-MG-PM
     Route: 048
     Dates: start: 20130702
  7. GABAPENTIN [Concomitant]
     Dosage: 100-MG-AM
     Route: 048
     Dates: start: 20130709
  8. METHYLPREDNISOLONE [Concomitant]
     Indication: RASH
     Dosage: 40-76 MG-Q12H
     Route: 042
     Dates: start: 20130709, end: 20130720
  9. PHYTONADIONE [Concomitant]
     Indication: HAEMORRHAGE PROPHYLAXIS
     Dosage: 10-MG-QD
     Route: 048
     Dates: start: 20130707, end: 20130709
  10. PHYTONADIONE [Concomitant]
     Dosage: 10-MG-ONCE
     Route: 042
     Dates: start: 20130712, end: 20130712
  11. PHYTONADIONE [Concomitant]
     Dosage: 5-MG-ONCE
     Route: 042
     Dates: start: 20130712, end: 20130712
  12. POTASSIUM CHLORIDE [Concomitant]
     Indication: MINERAL SUPPLEMENTATION
     Dosage: 20-MEQ-ONCE
     Route: 042
     Dates: start: 20130702, end: 20130702
  13. POTASSIUM CHLORIDE [Concomitant]
     Dosage: 20-MEQ-ONCE
     Route: 042
     Dates: start: 20130709, end: 20130709
  14. SARGRAMOSTIM [Concomitant]
     Dosage: 500-MCG-QD
     Route: 058
     Dates: start: 20130703, end: 20130710
  15. TRIAMCINOLONE [Concomitant]
     Indication: RASH
     Dosage: 0.1-% CREAM-BID
     Route: 061
     Dates: start: 20130706, end: 20130723
  16. ACETAMINOPHEN [Concomitant]
     Indication: PREMEDICATION
     Dosage: 650-MG-PRN
     Route: 048
     Dates: start: 20130612, end: 20130712
  17. DIPHENHYDRAMINE [Concomitant]
     Indication: PREMEDICATION
     Dosage: 25-50-MG-PRN
     Route: 042
     Dates: start: 20130612, end: 20130704
  18. DIPHENHYDRAMINE [Concomitant]
     Indication: PRURITUS
     Dosage: 25-50-MG-PRN
     Route: 048
     Dates: start: 20130614, end: 20130706
  19. DIPHENHYDRAMINE [Concomitant]
     Indication: RASH
     Dosage: 25-MG-ONCE
     Route: 042
     Dates: start: 20130709, end: 20130709
  20. HYDROMORPHONE [Concomitant]
     Indication: PAIN
     Dosage: 2-MG-Q4-6H PRN
     Route: 048
     Dates: start: 20130111
  21. HYDROMORPHONE [Concomitant]
     Indication: NEURALGIA
     Dosage: 2-MG-ONCE
     Route: 048
     Dates: start: 20130702, end: 20130702
  22. HYDROMORPHONE [Concomitant]
     Dosage: 2-MG-ONCE PRN
     Route: 048
     Dates: start: 20130704, end: 20130704
  23. HYDROMORPHONE [Concomitant]
     Dosage: 0.7-MG-ONCE-PRN
     Route: 042
     Dates: start: 20130705, end: 20130707
  24. HYDROXYZINE [Concomitant]
     Indication: PRURITUS
     Dosage: 25-MG-ONCE-PRN
     Route: 048
     Dates: start: 20130710, end: 20130710
  25. LOPERAMIDE [Concomitant]
     Indication: DIARRHOEA
     Dosage: 2-MCG-FOUR TIMES A DAY PRN
     Route: 048
     Dates: start: 20130707, end: 20130707
  26. MINERAL OIL W/PETROLATUM [Concomitant]
     Indication: DRY SKIN
     Dosage: NOT APPLICABLE-PRN
     Route: 061
     Dates: start: 20130628, end: 20130718
  27. MINERAL OIL W/PETROLATUM [Concomitant]
     Indication: DRY EYE
     Dosage: 1-APPLICATION, BOTH EYES-PM PRN
     Route: 047
     Dates: start: 20130711, end: 20130711
  28. OXYMETHAZOLINE [Concomitant]
     Indication: EPISTAXIS
     Dosage: 2-3-SPRAY-3 TIMES A DAY PRN
     Route: 045
     Dates: start: 20130626, end: 20130709
  29. LIPID EMULSION [Concomitant]
     Indication: MALNUTRITION
     Dosage: 250-ML-INFUSE OVER 24 HOURS PRN
     Route: 042
     Dates: start: 20130625, end: 20130708
  30. PARENTERAL [Concomitant]
     Indication: MALNUTRITION
     Dosage: 1000-ML-DAILY PRN
     Route: 042
     Dates: start: 20130625, end: 20130711
  31. ZOLPIDEM [Concomitant]
     Indication: INSOMNIA
     Dosage: 5-10-MG-PM PRN
     Route: 048
     Dates: start: 20120905, end: 20130711
  32. LEVETIRACETAM [Concomitant]
     Indication: PROPHYLAXIS
     Dosage: 500-MG-EVERY 12 HOURS
     Route: 048
     Dates: start: 20130712, end: 20130719
  33. CITALOPRAM [Concomitant]
     Indication: DEPRESSION
     Dosage: 10-20-MG-QD
     Route: 048
     Dates: start: 20120803, end: 20130705
  34. URSODIOL [Concomitant]
     Indication: PROPHYLAXIS
     Dosage: 300-MG-BID
     Route: 048
     Dates: start: 20130612
  35. ACYCLOVIR                          /00587301/ [Concomitant]
     Indication: ANTIVIRAL PROPHYLAXIS
     Dosage: 400-MG-BID
     Route: 048
     Dates: start: 20130618
  36. CYCLOSPORINE [Concomitant]
     Indication: PROPHYLAXIS AGAINST GRAFT VERSUS HOST DISEASE
     Dosage: 1-DROP, BOTH EYES-BID
     Route: 047
     Dates: start: 20130528
  37. LEVOFLOXACIN [Concomitant]
     Indication: ANTIBIOTIC PROPHYLAXIS
     Dosage: 250-MG-QD
     Route: 048
     Dates: start: 20130619, end: 20130717
  38. VANCOMYCIN [Concomitant]
     Indication: CLOSTRIDIUM DIFFICILE COLITIS
     Dosage: 125-500-MG-FOUR TIMES A DAY
     Route: 048
     Dates: start: 20130619, end: 20130710
  39. ERGOCALCIFEROL [Concomitant]
     Indication: VITAMIN SUPPLEMENTATION
     Dosage: 50000-UNIT-EVERY WEEK
     Route: 048
     Dates: start: 20130620
  40. MAGNESIUM SULFATE [Concomitant]
     Indication: MINERAL SUPPLEMENTATION
     Dosage: 2-6-G-QD
     Route: 042
     Dates: start: 20130621
  41. SUCRALFATE [Concomitant]
     Indication: STOMATITIS
     Dosage: 1-G-FOUR TIMES A DAY
     Route: 048
     Dates: start: 20130621, end: 20130714
  42. LORAZEPAM [Concomitant]
     Indication: NAUSEA
     Dosage: 1-MG-Q4H PRN
     Route: 042
     Dates: start: 20130618, end: 20130711
  43. LORAZEPAM [Concomitant]
     Indication: VOMITING
     Dosage: 1-MG-BID PRN
     Route: 048
     Dates: start: 20120808
  44. LORAZEPAM [Concomitant]
     Indication: ANXIETY
  45. LORAZEPAM [Concomitant]
     Indication: INSOMNIA
  46. INSULIN LISPRO [Concomitant]
     Indication: HYPERGLYCAEMIA
     Dosage: 4-8-UNIT-ONCE PRN
     Route: 058
     Dates: start: 20130712, end: 20130712
  47. INSULIN LISPRO [Concomitant]
     Dosage: 2-12-UNIT-FOUR TIMES A DAY PRN
     Route: 058
     Dates: start: 20130710, end: 20130731
  48. INSULIN GLARGINE [Concomitant]
     Indication: HYPERGLYCAEMIA
     Dosage: 10-15-UNIT-PM
     Route: 058
     Dates: start: 20130711
  49. LEUCOVORIN                         /00566701/ [Concomitant]
     Indication: PROPHYLAXIS
     Dosage: 10-MG-Q6H
     Route: 042
     Dates: start: 20130701, end: 20130702
  50. IRBESARTAN [Concomitant]
     Indication: HYPERTENSION
     Dosage: 150-MG-QD
     Route: 048
     Dates: start: 20120707
  51. METHOTREXATE [Concomitant]
     Indication: MYELOFIBROSIS
     Dosage: 10-MG-ONCE
     Route: 042
     Dates: start: 20130630, end: 20130630
  52. FOLIC ACID [Concomitant]
     Indication: MEDICAL DIET
     Dosage: 3-MG-ONCE
     Route: 048
     Dates: start: 20130705, end: 20130705
  53. FUROSEMIDE [Concomitant]
     Indication: OEDEMA PERIPHERAL
     Dosage: 20-60-MG-ONCE PRN
     Route: 042
     Dates: start: 20130615, end: 20130721
  54. FUROSEMIDE [Concomitant]
     Indication: OEDEMA
     Dosage: 40-MG-ONCE
     Route: 042
     Dates: start: 20130704, end: 20130704
  55. OMEPRAZOLE [Concomitant]
     Indication: GASTROOESOPHAGEAL REFLUX PROPHYLAXIS
     Dosage: 20-MG-QD
     Route: 048
     Dates: start: 20120707
  56. THIAMINE [Concomitant]
     Indication: MEDICAL DIET
     Dosage: 100-MG-ONCE
     Route: 042
     Dates: start: 20130705, end: 20130705
  57. THIAMINE [Concomitant]
     Indication: MALNUTRITION
  58. TRAZODONE [Concomitant]
     Indication: INSOMNIA
     Dosage: 50-MG-ONCE
     Route: 048
     Dates: start: 20130711, end: 20130711
  59. TRAZODONE [Concomitant]
     Indication: DEPRESSION
  60. DULOXETINE [Concomitant]
     Indication: DEPRESSION
     Dosage: 20-MG-PM
     Route: 048
     Dates: start: 20130705, end: 20130717
  61. FILGRASTIM [Concomitant]
     Dosage: 480-MCG-QD
     Route: 058
     Dates: start: 20130627, end: 20130709
  62. METRONIDAZOLE [Concomitant]
     Indication: CLOSTRIDIUM DIFFICILE INFECTION
     Dosage: 500 MG, TID
     Route: 048
     Dates: start: 20130625, end: 20130703
  63. METRONIDAZOLE [Concomitant]
     Indication: CLOSTRIDIUM DIFFICILE INFECTION

REACTIONS (1)
  - Haemorrhage intracranial [Recovered/Resolved]
